FAERS Safety Report 26158058 (Version 1)
Quarter: 2025Q4

REPORT INFORMATION
  Report Type: Spontaneous
  Country: US (occurrence: None)
  Receive Date: 20251215
  Receipt Date: 20251215
  Transmission Date: 20260117
  Serious: Yes (Hospitalization)
  Sender: FDA-CTU
  Company Number: None

PATIENT
  Sex: Male

DRUGS (11)
  1. LENALIDOMIDE [Suspect]
     Active Substance: LENALIDOMIDE
     Indication: Plasma cell myeloma
     Dosage: FREQ: TAKE 1 CAPSULE BY MOUTH EVERY DAY FOR 21 DAYS FOLLOWED BY 7 DAYS OFF. TAKE WHOLE WITH WATER,  WITH QR WITHOUT FOOD AT APPRQXIMATEL Y THE SAME TIME EACH DAY.
     Route: 048
     Dates: start: 20250701
  2. ATORVASTATIN [Concomitant]
     Active Substance: ATORVASTATIN
  3. DARZALEX  SOLFASPRO [Concomitant]
  4. DEXAMETHASONE [Concomitant]
     Active Substance: DEXAMETHASONE
  5. FLUTICASONE AER 50MCG [Concomitant]
  6. ACETAMINOPHEN\HYDROCODONE [Concomitant]
     Active Substance: ACETAMINOPHEN\HYDROCODONE
  7. LATANOPROST  SOL 0.005% [Concomitant]
  8. LENALIDOMIDE [Concomitant]
     Active Substance: LENALIDOMIDE
  9. QVAR REDIHAL AER 40MCG [Concomitant]
  10. STOOL SOFTENER (DOCUSATE) [Concomitant]
     Active Substance: DOCUSATE
  11. VELCADE  INJ 3.5MG [Concomitant]

REACTIONS (1)
  - Renal impairment [None]
